FAERS Safety Report 8973836 (Version 1)
Quarter: 2012Q4

REPORT INFORMATION
  Report Type: 
  Country: US (occurrence: US)
  Receive Date: 20121218
  Receipt Date: 20121218
  Transmission Date: 20130627
  Serious: No
  Sender: FDA-Public Use
  Company Number: US-BRISTOL-MYERS SQUIBB COMPANY-16881336

PATIENT
  Age: 51 Year
  Sex: Male
  Weight: 72.56 kg

DRUGS (4)
  1. ABILIFY [Suspect]
     Indication: MAJOR DEPRESSION
     Dosage: Started with 5mg QHS, incr to 10mg QHS, again reduced to 5mg on btw 16Jul+10Aug12
Nw with 5 mg
     Route: 048
     Dates: start: 20120404
  2. ABILIFY [Suspect]
     Indication: OBSESSIVE-COMPULSIVE DISORDER
     Dosage: Started with 5mg QHS, incr to 10mg QHS, again reduced to 5mg on btw 16Jul+10Aug12
Nw with 5 mg
     Route: 048
     Dates: start: 20120404
  3. METOPROLOL TARTRATE [Suspect]
     Indication: HYPERTENSION
  4. LUVOX [Suspect]

REACTIONS (4)
  - Sinusitis [Unknown]
  - Face oedema [Not Recovered/Not Resolved]
  - Hypersomnia [Unknown]
  - Treatment noncompliance [Unknown]
